FAERS Safety Report 18816247 (Version 4)
Quarter: 2021Q1

REPORT INFORMATION
  Report Type: Spontaneous
  Country: GB (occurrence: JP)
  Receive Date: 20210201
  Receipt Date: 20210304
  Transmission Date: 20210419
  Serious: Yes (Death, Other)
  Sender: FDA-Public Use
  Company Number: JP-ASTELLAS-2021US003054

PATIENT
  Age: 66 Year
  Sex: Female
  Weight: 55 kg

DRUGS (2)
  1. AVASTIN [Suspect]
     Active Substance: BEVACIZUMAB
     Indication: NON-SMALL CELL LUNG CANCER
     Dosage: 840 MG, EVERY 4 WEEKS (DOSAGE IS UNCERTAIN)
     Route: 041
     Dates: start: 20201113, end: 20201208
  2. TARCEVA [Suspect]
     Active Substance: ERLOTINIB HYDROCHLORIDE
     Indication: NON-SMALL CELL LUNG CANCER
     Dosage: 150 MG, ONCE DAILY (DOSAGE IS UNCERTAIN)
     Route: 048
     Dates: start: 20201113, end: 20201225

REACTIONS (4)
  - Hepatic failure [Fatal]
  - Hepatic encephalopathy [Fatal]
  - Rash [Not Recovered/Not Resolved]
  - Hypertension [Recovering/Resolving]

NARRATIVE: CASE EVENT DATE: 2020
